FAERS Safety Report 17211728 (Version 2)
Quarter: 2020Q1

REPORT INFORMATION
  Report Type: Report from Study
  Country: None (occurrence: SE)
  Receive Date: 20191230
  Receipt Date: 20200108
  Transmission Date: 20200409
  Serious: Yes (Hospitalization)
  Sender: FDA-Public Use
  Company Number: SE-ABBVIE-19K-150-3213572-00

PATIENT
  Age: 72 Year
  Sex: Female
  Weight: 55 kg

DRUGS (8)
  1. DUODOPA [Suspect]
     Active Substance: CARBIDOPA\LEVODOPA
     Indication: PARKINSON^S DISEASE
     Route: 050
     Dates: start: 20190916, end: 2019
  2. REPAGLINIDE. [Concomitant]
     Active Substance: REPAGLINIDE
     Indication: TYPE 2 DIABETES MELLITUS
  3. FOLIC ACID. [Concomitant]
     Active Substance: FOLIC ACID
     Indication: PRODUCT USED FOR UNKNOWN INDICATION
  4. DUODOPA [Suspect]
     Active Substance: CARBIDOPA\LEVODOPA
     Dosage: CONTINUOUS DOSE INCREASED FROM 2.2 ML/H TO 2.4 ML/H
     Route: 050
     Dates: start: 20200102
  5. CYANOCOBALAMIN. [Concomitant]
     Active Substance: CYANOCOBALAMIN
     Indication: PRODUCT USED FOR UNKNOWN INDICATION
  6. SIFROL [Concomitant]
     Active Substance: PRAMIPEXOLE
     Indication: PARKINSON^S DISEASE
  7. LEVOCAR [Concomitant]
     Indication: PARKINSON^S DISEASE
  8. DUODOPA [Suspect]
     Active Substance: CARBIDOPA\LEVODOPA
     Route: 050
     Dates: start: 20191219

REACTIONS (16)
  - Stoma site discharge [Not Recovered/Not Resolved]
  - Pyrexia [Recovering/Resolving]
  - Feeling abnormal [Recovering/Resolving]
  - Post procedural infection [Recovering/Resolving]
  - Pneumoperitoneum [Recovering/Resolving]
  - On and off phenomenon [Not Recovered/Not Resolved]
  - C-reactive protein increased [Recovering/Resolving]
  - Pain [Recovering/Resolving]
  - Stoma site erythema [Recovered/Resolved]
  - Therapeutic product effect incomplete [Not Recovered/Not Resolved]
  - Abdominal wall haematoma [Recovering/Resolving]
  - Fatigue [Recovering/Resolving]
  - Hyperkinesia [Not Recovered/Not Resolved]
  - Stoma site discharge [Recovered/Resolved]
  - Stoma site extravasation [Recovering/Resolving]
  - Loss of personal independence in daily activities [Unknown]

NARRATIVE: CASE EVENT DATE: 2019
